FAERS Safety Report 19566732 (Version 2)
Quarter: 2021Q3

REPORT INFORMATION
  Report Type: Spontaneous
  Country: ES (occurrence: ES)
  Receive Date: 20210716
  Receipt Date: 20210923
  Transmission Date: 20211014
  Serious: No
  Sender: FDA-Public Use
  Company Number: ES-SUN PHARMACEUTICAL INDUSTRIES LTD-2021R1-304203

PATIENT
  Age: 12 Year
  Sex: Female

DRUGS (3)
  1. METHOTREXATE. [Concomitant]
     Active Substance: METHOTREXATE
     Indication: SKIN DISORDER
  2. LOSARTAN. [Suspect]
     Active Substance: LOSARTAN
     Indication: SKIN DISORDER
     Dosage: 12.5 MILLIGRAM, DAILY
     Route: 048
  3. METHOTREXATE. [Concomitant]
     Active Substance: METHOTREXATE
     Indication: MORPHOEA
     Dosage: 15 MILLIGRAM, WEEKLY
     Route: 065

REACTIONS (4)
  - Somnolence [Unknown]
  - Product use in unapproved indication [Unknown]
  - Disease progression [Unknown]
  - Dizziness [Unknown]
